FAERS Safety Report 7255926-0 (Version None)
Quarter: 2011Q1

REPORT INFORMATION
  Report Type: 
  Country: None (occurrence: None)
  Receive Date: 20110129
  Receipt Date: 20100506
  Transmission Date: 20110831
  Serious: No
  Sender: FDA-Public Use
  Company Number: US-ABBOTT-10P-163-0643199-00

PATIENT
  Age: 60 Year
  Sex: Female

DRUGS (11)
  1. ASPIRIN [Concomitant]
  2. HUMIRA [Suspect]
     Indication: RHEUMATOID ARTHRITIS
  3. ASULPHADINE [Concomitant]
  4. METHOTREXATE [Concomitant]
  5. SYNTHROID [Concomitant]
  6. FOLID [Concomitant]
  7. RESTASIS [Concomitant]
  8. NIFEDIPINE [Concomitant]
  9. GENTELE GEL [Concomitant]
  10. HYDROCHLOROTHIAZIDE [Concomitant]
  11. FOLIC ACID [Concomitant]

REACTIONS (1)
  - WRONG TECHNIQUE IN DRUG USAGE PROCESS [None]
